FAERS Safety Report 10052315 (Version 1)
Quarter: 2014Q2

REPORT INFORMATION
  Report Type: Spontaneous
  Country: US (occurrence: None)
  Receive Date: 20140401
  Receipt Date: 20140401
  Transmission Date: 20141212
  Serious: Yes (Hospitalization, Disabling, Other)
  Sender: FDA-Public Use
  Company Number: None

PATIENT
  Age: 72 Year
  Sex: Female
  Weight: 147 kg

DRUGS (11)
  1. PREDNISONE [Suspect]
     Indication: INFLAMMATION
  2. D3 [Concomitant]
  3. B12 [Concomitant]
  4. BIOTIN [Concomitant]
  5. CHONDROITIN [Concomitant]
  6. GLUCOSAMINE [Concomitant]
  7. HYALURONIC ACID [Concomitant]
  8. PRESERVISION LUTEIN [Concomitant]
  9. MAGNESIUM [Concomitant]
  10. ACETYL-L-CARNITINE [Concomitant]
  11. ALPHA LIPOIC ACID [Concomitant]

REACTIONS (1)
  - Osteonecrosis [None]
